FAERS Safety Report 11661094 (Version 2)
Quarter: 2015Q4

REPORT INFORMATION
  Report Type: Report from Study
  Country: IT (occurrence: IT)
  Receive Date: 20151026
  Receipt Date: 20151111
  Transmission Date: 20160304
  Serious: Yes (Other)
  Sender: FDA-Public Use
  Company Number: PHHY2015IT122825

PATIENT
  Age: 43 Year
  Sex: Male
  Weight: 81 kg

DRUGS (3)
  1. TASIGNA [Suspect]
     Active Substance: NILOTINIB
     Indication: CHRONIC MYELOID LEUKAEMIA
     Dosage: 600 MG, QD
     Route: 048
     Dates: start: 20101027, end: 20141107
  2. CITALOPRAM [Concomitant]
     Active Substance: CITALOPRAM HYDROBROMIDE
     Indication: DEPRESSION
     Dosage: 20 MG, QD
     Route: 065
     Dates: start: 20121025, end: 20131201
  3. CITALOPRAM [Concomitant]
     Active Substance: CITALOPRAM HYDROBROMIDE
     Dosage: 10 MG, QD
     Route: 065
     Dates: start: 20131202, end: 20140626

REACTIONS (12)
  - Intermittent claudication [Recovered/Resolved]
  - Insomnia [Recovered/Resolved]
  - Periorbital oedema [Unknown]
  - Blood bilirubin increased [Recovered/Resolved]
  - Vascular stenosis [Unknown]
  - Blood bilirubin increased [Unknown]
  - Asthenia [Unknown]
  - Insomnia [Unknown]
  - Peripheral artery restenosis [Recovered/Resolved]
  - Vascular stenosis [Recovered/Resolved]
  - Periorbital oedema [Recovered/Resolved]
  - Peripheral arterial occlusive disease [Recovered/Resolved]

NARRATIVE: CASE EVENT DATE: 20131025
